FAERS Safety Report 18508096 (Version 6)
Quarter: 2021Q2

REPORT INFORMATION
  Report Type: Report from Study
  Country: CO (occurrence: CO)
  Receive Date: 20201116
  Receipt Date: 20210503
  Transmission Date: 20210717
  Serious: No
  Sender: FDA-Public Use
  Company Number: CO-TAKEDA-CO201847425

PATIENT
  Age: 47 Year
  Sex: Female
  Weight: 95 kg

DRUGS (4)
  1. VELAGLUCERASE ALFA [Suspect]
     Active Substance: VELAGLUCERASE ALFA
     Dosage: 4800 INTERNATIONAL UNIT, Q2WEEKS(4800 IU) (12 VIALS) (ENDOVENOUS)
     Route: 050
     Dates: start: 20151028
  2. VELAGLUCERASE ALFA [Suspect]
     Active Substance: VELAGLUCERASE ALFA
     Dosage: 4800 INTERNATIONAL UNIT Q2WEEKS
     Route: 042
     Dates: start: 20141028
  3. VELAGLUCERASE ALFA [Suspect]
     Active Substance: VELAGLUCERASE ALFA
     Dosage: 4800 INTERNATIONAL UNIT Q2WEEKS
     Route: 042
     Dates: start: 20141028
  4. VELAGLUCERASE ALFA [Suspect]
     Active Substance: VELAGLUCERASE ALFA
     Indication: GAUCHER^S DISEASE
     Dosage: 4000 INTERNATIONAL UNIT
     Route: 042
     Dates: start: 20141028

REACTIONS (8)
  - Obesity [Unknown]
  - Headache [Recovered/Resolved]
  - Bone pain [Not Recovered/Not Resolved]
  - Weight decreased [Unknown]
  - COVID-19 [Unknown]
  - Arthralgia [Not Recovered/Not Resolved]
  - Weight increased [Unknown]
  - Insomnia [Not Recovered/Not Resolved]

NARRATIVE: CASE EVENT DATE: 20181201
